FAERS Safety Report 10136947 (Version 1)
Quarter: 2014Q2

REPORT INFORMATION
  Report Type: Spontaneous
  Country: US (occurrence: None)
  Receive Date: 20140428
  Receipt Date: 20140428
  Transmission Date: 20141212
  Serious: Yes (Other)
  Sender: FDA-Public Use
  Company Number: None

PATIENT
  Age: 5 Year
  Sex: Male

DRUGS (2)
  1. TRIAMCINOLONE ACETONIDE [Suspect]
     Indication: RASH
     Dosage: APPLY TO THE AFFECTED AREA, TWICE DAILY, APPLIED TO A SURFACE, USUALLY THE SKIN
     Dates: start: 20140421, end: 20140426
  2. QVAR [Suspect]
     Indication: ASTHMA

REACTIONS (3)
  - Pollakiuria [None]
  - Overdose [None]
  - Drug interaction [None]
